FAERS Safety Report 10243717 (Version 1)
Quarter: 2014Q2

REPORT INFORMATION
  Report Type: Spontaneous
  Country: US (occurrence: US)
  Receive Date: 20140618
  Receipt Date: 20140618
  Transmission Date: 20141212
  Serious: Yes (Hospitalization)
  Sender: FDA-Public Use
  Company Number: US-ASTRAZENECA-2014SE40587

PATIENT
  Age: 28 Year
  Sex: Male

DRUGS (2)
  1. SEROQUEL XR [Suspect]
     Indication: MAJOR DEPRESSION
     Route: 048
  2. SEROQUEL XR [Suspect]
     Indication: MAJOR DEPRESSION
     Dosage: 20 TABLETS
     Route: 048

REACTIONS (2)
  - Overdose [Unknown]
  - Loss of consciousness [Recovered/Resolved]
